FAERS Safety Report 20488155 (Version 2)
Quarter: 2022Q1

REPORT INFORMATION
  Report Type: Report from Study
  Country: US (occurrence: US)
  Receive Date: 20220218
  Receipt Date: 20220307
  Transmission Date: 20220424
  Serious: Yes (Death, Life-Threatening, Hospitalization, Other)
  Sender: FDA-Public Use
  Company Number: US-AUROBINDO-AUR-APL-2022-004688

PATIENT
  Age: 58 Year
  Sex: Male
  Weight: 131.9 kg

DRUGS (7)
  1. BELINOSTAT [Suspect]
     Active Substance: BELINOSTAT
     Indication: Metastatic malignant melanoma
     Dosage: 1000 MILLIGRAM/SQ. METER
     Route: 065
     Dates: start: 20220110, end: 20220204
  2. BELINOSTAT [Suspect]
     Active Substance: BELINOSTAT
     Dosage: UNK
     Route: 065
     Dates: start: 20220204
  3. BELINOSTAT [Suspect]
     Active Substance: BELINOSTAT
     Dosage: UNK
  4. BINIMETINIB [Suspect]
     Active Substance: BINIMETINIB
     Indication: Metastatic malignant melanoma
     Dosage: 45 MILLIGRAM, TWO TIMES A DAY
     Route: 048
     Dates: start: 20220110, end: 20220204
  5. BINIMETINIB [Suspect]
     Active Substance: BINIMETINIB
     Dosage: UNK
     Route: 065
     Dates: start: 20220204
  6. ELIQUIS [Concomitant]
     Active Substance: APIXABAN
     Indication: Deep vein thrombosis
     Dosage: UNK
     Route: 065
     Dates: start: 2020
  7. MELOXICAM [Concomitant]
     Active Substance: MELOXICAM
     Indication: Osteoarthritis
     Dosage: UNK
     Route: 065

REACTIONS (1)
  - Sepsis [Fatal]

NARRATIVE: CASE EVENT DATE: 20220204
